FAERS Safety Report 8533940-2 (Version None)
Quarter: 2012Q3

REPORT INFORMATION
  Report Type: 
  Country: None (occurrence: None)
  Receive Date: 20120705
  Receipt Date: 20120619
  Transmission Date: 20120928
  Serious: Yes (Hospitalization)
  Sender: FDA-Public Use
  Company Number: 003-079

PATIENT
  Age: 30 Year
  Sex: Female

DRUGS (2)
  1. ... [Concomitant]
  2. CROFAB [Suspect]
     Indication: SNAKE BITE
     Dosage: 14 VIALS TOTAL
     Dates: start: 20120619

REACTIONS (4)
  - OEDEMA PERIPHERAL [None]
  - CONTUSION [None]
  - SENSORY LOSS [None]
  - BLOOD PRESSURE SYSTOLIC INCREASED [None]
